FAERS Safety Report 19147808 (Version 3)
Quarter: 2022Q2

REPORT INFORMATION
  Report Type: Report from Study
  Country: DE (occurrence: DE)
  Receive Date: 20210416
  Receipt Date: 20220616
  Transmission Date: 20220721
  Serious: Yes (Other)
  Sender: FDA-Public Use
  Company Number: NVSC2019DE014785

PATIENT
  Sex: Female

DRUGS (21)
  1. GILENYA [Suspect]
     Active Substance: FINGOLIMOD HYDROCHLORIDE
     Indication: Multiple sclerosis
     Dosage: 0.5 MG, QD
     Route: 048
     Dates: start: 20180411
  2. LEVOTHYROXINE SODIUM [Concomitant]
     Active Substance: LEVOTHYROXINE SODIUM
     Indication: Hypothyroidism
     Dosage: 100 UG
     Route: 065
     Dates: start: 20170101
  3. DESOGESTREL [Concomitant]
     Active Substance: DESOGESTREL
     Indication: Contraception
     Dosage: 75 UG
     Route: 065
     Dates: start: 20160601
  4. DIMETHINDENE [Concomitant]
     Active Substance: DIMETHINDENE
     Indication: Skin reaction
     Dosage: 1 DOSAGE FORM, QD (1 MG/G)
     Route: 065
     Dates: start: 20191011, end: 20191012
  5. ACETYLCYSTEINE [Concomitant]
     Active Substance: ACETYLCYSTEINE
     Indication: Nasopharyngitis
     Dosage: 600 MG
     Route: 065
     Dates: start: 20190926, end: 20190927
  6. AMANTADINE [Concomitant]
     Active Substance: AMANTADINE
     Indication: Fatigue
     Dosage: 50 MG
     Route: 065
     Dates: start: 20190109, end: 201904
  7. AMANTADINE [Concomitant]
     Active Substance: AMANTADINE
     Dosage: 100 MG
     Route: 065
     Dates: start: 20190401, end: 201911
  8. CETIRIZINE HYDROCHLORIDE [Concomitant]
     Active Substance: CETIRIZINE HYDROCHLORIDE
     Indication: Rash erythematous
     Dosage: UNK UNK, PRN
     Route: 065
     Dates: start: 20190130, end: 20190206
  9. AZITHROMYCIN [Concomitant]
     Active Substance: AZITHROMYCIN
     Indication: Nasopharyngitis
     Dosage: 250 MG
     Route: 065
     Dates: start: 20190121, end: 20190123
  10. LEVOTHYROXINE [Concomitant]
     Active Substance: LEVOTHYROXINE
     Indication: Hypothyroidism
     Dosage: 100 UG
     Route: 065
     Dates: start: 20170101
  11. NASENTROPFEN ^RATIOPHARM^ [Concomitant]
     Indication: Nasopharyngitis
     Dosage: UNK (2-3 TIMES DAILY)
     Route: 065
     Dates: start: 20181002, end: 20181018
  12. PREDNISOLONE [Concomitant]
     Active Substance: PREDNISOLONE
     Indication: Rash erythematous
     Dosage: 100 MG
     Route: 065
     Dates: start: 20190130, end: 20190130
  13. PREDNISOLONE [Concomitant]
     Active Substance: PREDNISOLONE
     Dosage: 80 MG
     Route: 065
     Dates: start: 20190131, end: 20190131
  14. PREDNISOLONE [Concomitant]
     Active Substance: PREDNISOLONE
     Dosage: 60 MG
     Route: 065
     Dates: start: 20190201, end: 20190202
  15. PREDNISOLONE [Concomitant]
     Active Substance: PREDNISOLONE
     Dosage: 40 MG
     Route: 065
     Dates: start: 20190203, end: 20190204
  16. PREDNISOLONE [Concomitant]
     Active Substance: PREDNISOLONE
     Dosage: 20 MG
     Route: 065
     Dates: start: 20190205, end: 20190205
  17. ADVANTAN MILK [Concomitant]
     Indication: Rash erythematous
     Dosage: UNK UNK, PRN
     Route: 065
     Dates: start: 20190130, end: 20190206
  18. IBUPROFEN [Concomitant]
     Active Substance: IBUPROFEN
     Indication: Nasopharyngitis
     Dosage: 400 MG, PRN (AS NEEDED)
     Route: 065
     Dates: start: 20190112, end: 20190124
  19. NASENSPRAY RATIOPHARM [Concomitant]
     Indication: Nasopharyngitis
     Dosage: UNK UNK, PRN
     Route: 065
     Dates: start: 20190112, end: 20190124
  20. ACETAMINOPHEN\ASCORBIC ACID\CAFFEINE\CHLORPHENIRAMINE MALEATE [Concomitant]
     Active Substance: ACETAMINOPHEN\ASCORBIC ACID\CAFFEINE\CHLORPHENIRAMINE MALEATE
     Indication: Nasopharyngitis
     Dosage: UNK UNK, PRN
     Route: 065
     Dates: start: 20190112, end: 20190124
  21. METAMIZOLE [Concomitant]
     Active Substance: METAMIZOLE
     Indication: Pain
     Dosage: 500 MG
     Route: 065
     Dates: start: 20210227, end: 20210302

REACTIONS (4)
  - Ophthalmic herpes zoster [Recovered/Resolved]
  - Hypertension [Not Recovered/Not Resolved]
  - Depression [Not Recovered/Not Resolved]
  - Headache [Not Recovered/Not Resolved]

NARRATIVE: CASE EVENT DATE: 20191001
